FAERS Safety Report 6440527-4 (Version None)
Quarter: 2009Q4

REPORT INFORMATION
  Report Type: 
  Country: None (occurrence: None)
  Receive Date: 20091113
  Receipt Date: 20091106
  Transmission Date: 20100525
  Serious: Yes (Other)
  Sender: FDA-Public Use
  Company Number: PHHY2009JP48791

PATIENT
  Sex: Female

DRUGS (3)
  1. TIZANIDINE HCL [Suspect]
  2. TEGRETOL [Suspect]
  3. DEPAS [Concomitant]

REACTIONS (4)
  - AMNESIA [None]
  - ASTHENIA [None]
  - DIZZINESS [None]
  - POLLAKIURIA [None]
